FAERS Safety Report 20747198 (Version 3)
Quarter: 2022Q2

REPORT INFORMATION
  Report Type: Spontaneous
  Country: JP (occurrence: JP)
  Receive Date: 20220425
  Receipt Date: 20220530
  Transmission Date: 20220721
  Serious: Yes (Other)
  Sender: FDA-Public Use
  Company Number: JP-MSD-2204JPN000307J

PATIENT
  Age: 75 Year
  Sex: Female

DRUGS (6)
  1. MOLNUPIRAVIR [Suspect]
     Active Substance: MOLNUPIRAVIR
     Indication: COVID-19 treatment
     Dosage: 800 MILLIGRAM, BID
     Route: 048
     Dates: start: 20220402, end: 20220403
  2. DIMEMORFAN PHOSPHATE [Suspect]
     Active Substance: DIMEMORFAN PHOSPHATE
     Dosage: 10 MILLIGRAM, TID
     Route: 048
     Dates: start: 20220402
  3. HERBALS\POLYGALA SENEGA ROOT [Suspect]
     Active Substance: HERBALS\POLYGALA SENEGA ROOT
     Dosage: 3 MILLILITER, TID
     Route: 048
     Dates: start: 20220402
  4. AMBROXOL HYDROCHLORIDE [Suspect]
     Active Substance: AMBROXOL HYDROCHLORIDE
     Dosage: 2 MILLILITER, TID
     Route: 048
     Dates: start: 20220402
  5. CALONAL [Suspect]
     Active Substance: ACETAMINOPHEN
     Dosage: 500 MILLIGRAM, PRN
     Route: 048
  6. ACETAMINOPHEN\APRONALIDE\CAFFEINE\PROPYPHENAZONE [Suspect]
     Active Substance: ACETAMINOPHEN\APRONALIDE\CAFFEINE\PROPYPHENAZONE
     Dosage: 1 GRAM, PRN
     Route: 048

REACTIONS (2)
  - Nausea [Recovered/Resolved]
  - Vomiting [Recovered/Resolved]

NARRATIVE: CASE EVENT DATE: 20220403
